FAERS Safety Report 4396485-X (Version None)
Quarter: 2004Q3

REPORT INFORMATION
  Report Type: 
  Country: None (occurrence: None)
  Receive Date: 20040709
  Receipt Date: 20040621
  Transmission Date: 20050211
  Serious: Yes (Hospitalization)
  Sender: FDA-Public Use
  Company Number: CA-JNJFOC-20040304654

PATIENT
  Age: 39 Year
  Sex: Female

DRUGS (12)
  1. INFLIXIMAB, RECOMBINANT - BLINDED (INFLIXIMAB, RECOMBINANT) LYOPHILIZE [Suspect]
     Indication: PSORIASIS
     Dosage: INTRAVENOUS
     Route: 042
     Dates: start: 20031230
  2. INFLIXIMAB, RECOMBINANT - BLINDED (INFLIXIMAB, RECOMBINANT) LYOPHILIZE [Suspect]
     Indication: PSORIASIS
     Dosage: INTRAVENOUS
     Route: 042
     Dates: start: 20040114
  3. INFLIXIMAB, RECOMBINANT - BLINDED (INFLIXIMAB, RECOMBINANT) LYOPHILIZE [Suspect]
     Indication: PSORIASIS
     Dosage: INTRAVENOUS
     Route: 042
     Dates: start: 20040220
  4. PLACEBO (PLACEBO) LYOPHILIZED POWDER [Suspect]
     Indication: PSORIASIS
     Dosage: INTRAVENOUS
     Route: 042
     Dates: start: 20031230
  5. PLACEBO (PLACEBO) LYOPHILIZED POWDER [Suspect]
     Indication: PSORIASIS
     Dosage: INTRAVENOUS
     Route: 042
     Dates: start: 20040114
  6. PLACEBO (PLACEBO) LYOPHILIZED POWDER [Suspect]
     Indication: PSORIASIS
     Dosage: INTRAVENOUS
     Route: 042
     Dates: start: 20040220
  7. TRAZODONE HCL [Concomitant]
  8. HYDROCHLOROTHIAZIDE [Concomitant]
  9. CETAPHIL (CETAPHIL) [Concomitant]
  10. ATIVAN [Concomitant]
  11. METHOTREXATE [Concomitant]
  12. FOLIC ACID [Concomitant]

REACTIONS (11)
  - ANTINUCLEAR ANTIBODY POSITIVE [None]
  - ARTHRALGIA [None]
  - BURNING SENSATION [None]
  - DERMATITIS CONTACT [None]
  - ERYTHEMA [None]
  - LIGAMENT LAXITY [None]
  - LUPUS-LIKE SYNDROME [None]
  - PRURITUS [None]
  - PSORIASIS [None]
  - PSORIATIC ARTHROPATHY [None]
  - RED BLOOD CELL SEDIMENTATION RATE INCREASED [None]
